FAERS Safety Report 6767407-9 (Version None)
Quarter: 2010Q2

REPORT INFORMATION
  Report Type: 
  Country: None (occurrence: None)
  Receive Date: 20100611
  Receipt Date: 20100611
  Transmission Date: 20101027
  Serious: Yes (Other)
  Sender: FDA-Public Use
  Company Number: None

PATIENT
  Sex: Male
  Weight: 74.8435 kg

DRUGS (3)
  1. TRAMADOL 50 MG AKYMA FOR ULTRIM [Suspect]
     Indication: BACK PAIN
     Dosage: 4 DAILY PO
     Route: 048
     Dates: start: 20100610
  2. TRAMADOL 50 MG AKYMA FOR ULTRIM [Suspect]
     Indication: NECK PAIN
     Dosage: 4 DAILY PO
     Route: 048
     Dates: start: 20100610
  3. TRAMADOL 50 MG AKYMA FOR ULTRIM [Suspect]
     Indication: PAIN IN EXTREMITY
     Dosage: 4 DAILY PO
     Route: 048
     Dates: start: 20100610

REACTIONS (7)
  - ABDOMINAL PAIN UPPER [None]
  - BACK PAIN [None]
  - NECK PAIN [None]
  - PAIN IN EXTREMITY [None]
  - ROAD TRAFFIC ACCIDENT [None]
  - UNEVALUABLE EVENT [None]
  - VOMITING [None]
